FAERS Safety Report 6260478-8 (Version None)
Quarter: 2009Q3

REPORT INFORMATION
  Report Type: 
  Country: None (occurrence: None)
  Receive Date: 20090708
  Receipt Date: 20090626
  Transmission Date: 20100115
  Serious: Yes (Other)
  Sender: FDA-Public Use
  Company Number: SG-PFIZER INC-2009234299

PATIENT
  Age: 88 Year

DRUGS (1)
  1. PHENYTOIN SODIUM AND PHENYTOIN [Suspect]
     Indication: EPILEPSY
     Dosage: 200 MG, 1X/DAY
     Route: 048
     Dates: start: 20080111, end: 20080120

REACTIONS (1)
  - DRUG ERUPTION [None]
